FAERS Safety Report 13733874 (Version 1)
Quarter: 2017Q3

REPORT INFORMATION
  Report Type: Spontaneous
  Country: FR (occurrence: FR)
  Receive Date: 20170707
  Receipt Date: 20170707
  Transmission Date: 20171127
  Serious: Yes (Disabling, Other)
  Sender: FDA-Public Use
  Company Number: FR-009507513-1706FRA011252

PATIENT
  Sex: Male

DRUGS (6)
  1. PLAVIX [Concomitant]
     Active Substance: CLOPIDOGREL BISULFATE
     Indication: ANGINA UNSTABLE
     Dosage: UNK
     Dates: start: 2012
  2. PRETERAX (INDAPAMIDE (+) PERINDOPRIL ERBUMINE) [Concomitant]
     Indication: ANGINA UNSTABLE
     Dosage: UNK
     Dates: start: 2012
  3. LAROXYL [Concomitant]
     Active Substance: AMITRIPTYLINE
     Indication: DIABETIC NEUROPATHY
     Dosage: UNK
     Dates: start: 2013
  4. KARDEGIC [Concomitant]
     Active Substance: ASPIRIN LYSINE
     Indication: ANGINA UNSTABLE
     Dosage: UNK
     Dates: start: 2012
  5. BISOPROLOL [Concomitant]
     Active Substance: BISOPROLOL
     Indication: ANGINA UNSTABLE
     Dosage: UNK
     Dates: start: 2012
  6. VELMETIA [Suspect]
     Active Substance: METFORMIN\SITAGLIPTIN
     Indication: TYPE 2 DIABETES MELLITUS
     Dosage: 1 DF, PER DAY (50MG/1000MG)
     Route: 048
     Dates: start: 2009

REACTIONS (2)
  - Pancreatic failure [Not Recovered/Not Resolved]
  - Pancreatic atrophy [Not Recovered/Not Resolved]

NARRATIVE: CASE EVENT DATE: 2015
